FAERS Safety Report 8487841-9 (Version None)
Quarter: 2012Q3

REPORT INFORMATION
  Report Type: 
  Country: None (occurrence: None)
  Receive Date: 20120705
  Receipt Date: 20120627
  Transmission Date: 20120928
  Serious: Yes (Hospitalization)
  Sender: FDA-Public Use
  Company Number: FR-PFIZER INC-2012154192

PATIENT
  Age: 76 Year
  Sex: Male

DRUGS (12)
  1. TORISEL [Suspect]
     Indication: ANTIANGIOGENIC THERAPY
     Dosage: UNK
     Dates: start: 20090728
  2. TRANDOLAPRIL [Concomitant]
     Dosage: 2 MG, UNK
  3. ATORVASTATIN [Concomitant]
     Dosage: 10 MG, UNK
  4. NOVOLOG MIX 70/30 [Concomitant]
     Dosage: UNK
  5. PREDNISOLONE [Concomitant]
     Dosage: 20 MG, UNK
  6. NEBIVOLOL HCL [Concomitant]
     Dosage: 5 MG, UNK
  7. CALCIDIA [Concomitant]
     Dosage: 5 MG, UNK
  8. KARDEGIC [Concomitant]
     Dosage: 75 MG, UNK
  9. TORISEL [Suspect]
     Dosage: CYCLE 33
     Dates: start: 20100331, end: 20100331
  10. NOVORAPID [Concomitant]
     Dosage: UNK
  11. PANTOPRAZOLE SODIUM [Concomitant]
     Dosage: 20 MG, UNK
  12. LASIX [Concomitant]
     Dosage: 40 MG, UNK

REACTIONS (1)
  - GASTROINTESTINAL HAEMORRHAGE [None]
